FAERS Safety Report 22147103 (Version 1)
Quarter: 2023Q1

REPORT INFORMATION
  Report Type: Spontaneous
  Country: US (occurrence: US)
  Receive Date: 20230328
  Receipt Date: 20230328
  Transmission Date: 20230417
  Serious: No
  Sender: FDA-Public Use
  Company Number: US-drreddys-SPO/USA/23/0161314

PATIENT
  Age: 17 Year
  Sex: Female

DRUGS (2)
  1. ZENATANE [Suspect]
     Active Substance: ISOTRETINOIN
     Indication: Product used for unknown indication
     Dosage: RMA ISSUE DATE: 22 JULY 2022 08:36:20 AM, 24 AUGUST  2022 04:13:05 PM, 24 SEPTEMBER 2022 08:14:52 AM
  2. ZENATANE [Suspect]
     Active Substance: ISOTRETINOIN
     Dosage: RMA ISSUE DATE : 23 NOVEMBER 2022 02:22:57 PM, 29 DECEMBER 2022 10:31:52 AM

REACTIONS (1)
  - Illness [Unknown]
